FAERS Safety Report 4755165-9 (Version None)
Quarter: 2005Q3

REPORT INFORMATION
  Report Type: 
  Country: None (occurrence: None)
  Receive Date: 20050829
  Receipt Date: 20050822
  Transmission Date: 20060218
  Serious: Yes (Other)
  Sender: FDA-Public Use
  Company Number: US-JNJFOC-20050804856

PATIENT
  Age: 33 Year
  Sex: Female

DRUGS (1)
  1. REMICADE [Suspect]
     Indication: CROHN'S DISEASE
     Dosage: TOTAL OF 9 INFUSIONS
     Route: 042

REACTIONS (1)
  - LUPUS-LIKE SYNDROME [None]
